FAERS Safety Report 5083532-5 (Version None)
Quarter: 2006Q3

REPORT INFORMATION
  Report Type: 
  Country: None (occurrence: None)
  Receive Date: 20060818
  Receipt Date: 20060808
  Transmission Date: 20061208
  Serious: Yes (Disabling, Other)
  Sender: FDA-Public Use
  Company Number: JP-JNJFOC-20060405197

PATIENT
  Age: 40 Year
  Sex: Female

DRUGS (3)
  1. OFLOCET [Suspect]
     Route: 048
  2. OFLOCET [Suspect]
     Indication: PYELONEPHRITIS
     Route: 048
  3. CEFTRIAXONE [Concomitant]
     Indication: PYELONEPHRITIS
     Route: 030
     Dates: start: 20060126, end: 20060221

REACTIONS (1)
  - MYOPATHY [None]
